FAERS Safety Report 25228641 (Version 2)
Quarter: 2025Q2

REPORT INFORMATION
  Report Type: Report from Study
  Country: US (occurrence: US)
  Receive Date: 20250423
  Receipt Date: 20250509
  Transmission Date: 20250716
  Serious: Yes (Other)
  Sender: ACADIA PHARMACEUTICALS
  Company Number: US-ACADIA PHARMACEUTICALS INC.-ACA-2025-PIM-004489

PATIENT
  Sex: Male

DRUGS (10)
  1. NUPLAZID [Suspect]
     Active Substance: PIMAVANSERIN TARTRATE
     Indication: Parkinson^s disease
     Dosage: 34 MILLIGRAM, QD
     Route: 048
     Dates: start: 202503
  2. DONEPEZIL [Suspect]
     Active Substance: DONEPEZIL
     Indication: Product used for unknown indication
     Route: 065
  3. DONEPEZIL [Suspect]
     Active Substance: DONEPEZIL
     Route: 065
     Dates: start: 202503
  4. ASPIRIN [Concomitant]
     Active Substance: ASPIRIN
  5. ROSUVASTATIN [Concomitant]
     Active Substance: ROSUVASTATIN
  6. VITAMIN B12 [Concomitant]
     Active Substance: CYANOCOBALAMIN
  7. VITAMIN D3 [Concomitant]
     Active Substance: CHOLECALCIFEROL
  8. OMEPRAZOLE [Concomitant]
     Active Substance: OMEPRAZOLE
  9. MIRTAZAPINE [Concomitant]
     Active Substance: MIRTAZAPINE
  10. GEMTESA [Concomitant]
     Active Substance: VIBEGRON

REACTIONS (4)
  - Hallucination [Recovering/Resolving]
  - Anxiety [Recovered/Resolved]
  - Peripheral swelling [Unknown]
  - Confusional state [Unknown]
